FAERS Safety Report 26156928 (Version 1)
Quarter: 2025Q4

REPORT INFORMATION
  Report Type: Spontaneous
  Country: CN (occurrence: CN)
  Receive Date: 20251215
  Receipt Date: 20251215
  Transmission Date: 20260118
  Serious: Yes (Hospitalization)
  Sender: ACCORD
  Company Number: CN-Accord-517955

PATIENT
  Age: 56 Year
  Sex: Male

DRUGS (16)
  1. AMLODIPINE [Interacting]
     Active Substance: AMLODIPINE BESYLATE
     Indication: Endocrine hypertension
  2. DILTIAZEM [Interacting]
     Active Substance: DILTIAZEM
     Indication: Hypertension
  3. DOXAZOSIN [Interacting]
     Active Substance: DOXAZOSIN MESYLATE
     Indication: Endocrine hypertension
  4. ISOSORBIDE MONONITRATE [Interacting]
     Active Substance: ISOSORBIDE MONONITRATE
     Indication: Chest discomfort
  5. OLMESARTAN [Interacting]
     Active Substance: OLMESARTAN
     Indication: Endocrine hypertension
  6. SPIRONOLACTONE [Interacting]
     Active Substance: SPIRONOLACTONE
     Indication: Hyperaldosteronism
  7. BISOPROLOL [Interacting]
     Active Substance: BISOPROLOL
     Indication: Endocrine hypertension
  8. CLONIDINE [Interacting]
     Active Substance: CLONIDINE
     Indication: Chest discomfort
  9. NIFEDIPINE [Interacting]
     Active Substance: NIFEDIPINE
     Indication: Endocrine hypertension
  10. RIFAMPIN [Interacting]
     Active Substance: RIFAMPIN
     Indication: Brucellosis
  11. TERAZOSIN [Interacting]
     Active Substance: TERAZOSIN HYDROCHLORIDE
     Indication: Endocrine hypertension
  12. VALSARTAN [Interacting]
     Active Substance: VALSARTAN
     Indication: Endocrine hypertension
  13. DOXYCYCLINE [Concomitant]
     Active Substance: DOXYCYCLINE
     Indication: Brucellosis
  14. SPIRONOLACTONE [Interacting]
     Active Substance: SPIRONOLACTONE
     Indication: Hyperaldosteronism
  15. BISOPROLOL [Interacting]
     Active Substance: BISOPROLOL
     Indication: Endocrine hypertension
  16. TERAZOSIN [Interacting]
     Active Substance: TERAZOSIN HYDROCHLORIDE
     Indication: Endocrine hypertension

REACTIONS (5)
  - Drug level decreased [Recovered/Resolved]
  - False positive investigation result [Recovered/Resolved]
  - Therapeutic product effect decreased [Recovered/Resolved]
  - Drug interaction [Recovered/Resolved]
  - Hypertension [Recovered/Resolved]
